FAERS Safety Report 8206320-7 (Version None)
Quarter: 2012Q1

REPORT INFORMATION
  Report Type: 
  Country: None (occurrence: None)
  Receive Date: 20120313
  Receipt Date: 20120302
  Transmission Date: 20120608
  Serious: Yes (Other)
  Sender: FDA-Public Use
  Company Number: PHHY2012PL018906

PATIENT
  Sex: Male

DRUGS (1)
  1. GLEEVEC [Suspect]
     Route: 065

REACTIONS (4)
  - BLOOD CREATININE INCREASED [None]
  - FISTULA [None]
  - ABSCESS [None]
  - INFECTIOUS PERITONITIS [None]
